FAERS Safety Report 5071114-0 (Version None)
Quarter: 2006Q3

REPORT INFORMATION
  Report Type: 
  Country: None (occurrence: None)
  Receive Date: 20060804
  Receipt Date: 20060216
  Transmission Date: 20061208
  Serious: No
  Sender: FDA-Public Use
  Company Number: US-GLAXOSMITHKLINE-A0593924A

PATIENT
  Age: 28 Year
  Sex: Male

DRUGS (2)
  1. NICORETTE (MINT) [Suspect]
     Dates: start: 20060214, end: 20060215
  2. NICORETTE (MINT) [Suspect]
     Dates: start: 20060214

REACTIONS (2)
  - DRY THROAT [None]
  - THROAT IRRITATION [None]
